FAERS Safety Report 5606993-9 (Version None)
Quarter: 2008Q1

REPORT INFORMATION
  Report Type: 
  Country: None (occurrence: None)
  Receive Date: 20080129
  Receipt Date: 20080117
  Transmission Date: 20080703
  Serious: Yes (Other)
  Sender: FDA-Public Use
  Company Number: US-MERCK-0607USA04748

PATIENT
  Age: 87 Year
  Sex: Female

DRUGS (7)
  1. FOSAMAX [Suspect]
     Indication: OSTEOPOROSIS
     Route: 048
     Dates: start: 20011001, end: 20060301
  2. TOPROL-XL [Concomitant]
     Route: 065
  3. ZOCOR [Concomitant]
     Route: 048
  4. ZOLOFT [Concomitant]
     Route: 065
  5. OXYBUTYNIN CHLORIDE [Concomitant]
     Route: 065
  6. LISINOPRIL [Concomitant]
     Route: 065
  7. ASPIRIN [Concomitant]
     Route: 065

REACTIONS (12)
  - AMNESIA [None]
  - ANAEMIA [None]
  - ATRIAL FIBRILLATION [None]
  - CAROTID ARTERY STENOSIS [None]
  - DEMENTIA [None]
  - DEPRESSION [None]
  - INTERMITTENT CLAUDICATION [None]
  - OSTEOMYELITIS [None]
  - OSTEONECROSIS [None]
  - POLLAKIURIA [None]
  - THYROID NEOPLASM [None]
  - URGE INCONTINENCE [None]
